FAERS Safety Report 6611567-7 (Version None)
Quarter: 2010Q1

REPORT INFORMATION
  Report Type: 
  Country: None (occurrence: None)
  Receive Date: 20100222
  Receipt Date: 20100208
  Transmission Date: 20100710
  Serious: Yes (Death, Life-Threatening, Hospitalization)
  Sender: FDA-Public Use
  Company Number: DSA_42543_2010

PATIENT
  Age: 83 Year
  Sex: Female

DRUGS (19)
  1. ENALAPRIL MALEATE [Suspect]
     Indication: HYPERTENSION
     Dosage: 5 MG QD ORAL
     Route: 048
     Dates: end: 20091104
  2. ADALAT CRONO (ADALAT CR- NIFEDIPINE) [Suspect]
     Indication: HYPERTENSION
     Dosage: 20 MG BID ORAL
     Route: 048
     Dates: end: 20091104
  3. CORINAEL (CORINAEL L SR- NIFEDIPINE) [Suspect]
     Indication: HYPERTENSION
     Dosage: 20 MG BID ORAL
     Route: 048
     Dates: start: 20091105, end: 20100111
  4. PNEUMOVAX 23 /01694601/ (PNEUMOVAX 23) [Suspect]
     Indication: PROPHYLAXIS
     Dosage: 0.5 ML TOTAL SUBCUTANEOUS
     Route: 058
     Dates: start: 20100107, end: 20100107
  5. AMLODIPINE BESYLATE AND BENAZEPRIL HCL [Suspect]
     Indication: HYPERTENSION
     Dosage: 5 MG QD ORAL
     Route: 048
     Dates: start: 20091105, end: 20100111
  6. PRAVASTATIN       (PRAVASTATIN NA) [Suspect]
     Indication: LIPID METABOLISM DISORDER
     Dosage: 10 MG QD ORAL
     Route: 048
     Dates: start: 20091105, end: 20100110
  7. GASMOTIN (GASMOTIN) [Suspect]
     Indication: GASTRITIS
     Dosage: 5 MG QD ORAL
     Route: 048
     Dates: end: 20091104
  8. FAMOTIDINE [Suspect]
     Indication: GASTRITIS
     Dosage: 10 MG QD ORAL
     Route: 048
     Dates: start: 20091105, end: 20100110
  9. MEDILAC-BEBE (LAC-B) [Suspect]
     Indication: GASTROINTESTINAL DISORDER THERAPY
     Dosage: 1 G TID ORAL
     Route: 048
     Dates: start: 20091105, end: 20100101
  10. FERROUS SODIUM CITRATE (SODIUM FERROUS CITRATE) [Suspect]
     Indication: ANAEMIA
     Dosage: 50 MG QD ORAL
     Route: 048
     Dates: start: 20091105, end: 20100110
  11. MEVALOTIN (MEVALOTIN- PRAVASTATIN NA) [Suspect]
     Indication: LIPID METABOLISM DISORDER
     Dosage: 10 MG QD ORAL
     Route: 048
     Dates: end: 20091104
  12. GASMOTIN (GASMOTIN) [Suspect]
     Indication: GASTRITIS
     Dosage: 0.5 G TID ORAL
     Route: 048
     Dates: start: 20091105, end: 20100110
  13. FAMOTIDINE [Suspect]
     Indication: GASTRITIS
     Dosage: 10 MG QD ORAL
     Route: 048
     Dates: end: 20091104
  14. MIYA-BM (MIYA BM) [Suspect]
     Indication: GASTROINTESTINAL DISORDER
     Dosage: 1 G TID ORAL
     Route: 048
     Dates: end: 20091104
  15. FERROMIA /00023520/ (FERROMIA [Suspect]
     Indication: ANAEMIA
     Dosage: 50 MG QD ORAL
     Route: 048
     Dates: end: 20091104
  16. EUGLUCON [Concomitant]
  17. SAXIZON [Concomitant]
  18. THEOPHYLLINE [Concomitant]
  19. TULOBUTEROL [Concomitant]

REACTIONS (11)
  - ARRHYTHMIA [None]
  - ASTHMA [None]
  - BLOOD PRESSURE INCREASED [None]
  - CARDIO-RESPIRATORY ARREST [None]
  - CHOKING [None]
  - DECREASED APPETITE [None]
  - HEART RATE INCREASED [None]
  - HYPOPHAGIA [None]
  - PNEUMONIA ASPIRATION [None]
  - RENAL FAILURE [None]
  - UNRESPONSIVE TO STIMULI [None]
